FAERS Safety Report 4756775-5 (Version None)
Quarter: 2005Q3

REPORT INFORMATION
  Report Type: 
  Country: None (occurrence: None)
  Receive Date: 20050830
  Receipt Date: 20050826
  Transmission Date: 20060218
  Serious: Yes (Other)
  Sender: FDA-Public Use
  Company Number: PHNU2005DE02978

PATIENT
  Sex: Female

DRUGS (1)
  1. EMSELEX EXTENDED RELEASE [Suspect]
     Route: 065

REACTIONS (2)
  - HYPERTENSION [None]
  - TACHYCARDIA [None]
